FAERS Safety Report 9809459 (Version 2)
Quarter: 2014Q1

REPORT INFORMATION
  Report Type: Spontaneous
  Country: US (occurrence: US)
  Receive Date: 20140110
  Receipt Date: 20140110
  Transmission Date: 20141002
  Serious: Yes (Hospitalization, Other)
  Sender: FDA-Public Use
  Company Number: US-SANOFI-AVENTIS-2010SA048037

PATIENT
  Age: 69 Year
  Sex: Male

DRUGS (8)
  1. PLAVIX [Suspect]
     Indication: ENDARTERECTOMY
     Route: 048
     Dates: start: 200707, end: 200710
  2. PLAVIX [Suspect]
     Indication: ENDARTERECTOMY
     Route: 048
     Dates: start: 200901
  3. ASPIRIN [Concomitant]
     Route: 048
     Dates: end: 2007
  4. ATORVASTATIN [Concomitant]
  5. LISINOPRIL [Concomitant]
     Route: 065
  6. VERAPAMIL - SLOW RELEASE [Concomitant]
     Route: 065
  7. SPIRIVA ^PFIZER^ [Concomitant]
     Route: 065
     Dates: start: 2007
  8. ADVAIR DISKUS [Concomitant]
     Dosage: 250/50MCG
     Route: 065
     Dates: start: 2007

REACTIONS (4)
  - Subdural haematoma [Recovered/Resolved]
  - Off label use [Recovered/Resolved]
  - Extradural haematoma [Recovered/Resolved]
  - Cerebral haemorrhage [Unknown]
